FAERS Safety Report 8568747-3 (Version None)
Quarter: 2012Q3

REPORT INFORMATION
  Report Type: 
  Country: None (occurrence: None)
  Receive Date: 20120803
  Receipt Date: 20120207
  Transmission Date: 20120928
  Serious: No
  Sender: FDA-Public Use
  Company Number: US-ABBOTT-12P-163-0902186-00

PATIENT
  Sex: Male
  Weight: 83.536 kg

DRUGS (6)
  1. ZYRTEC [Concomitant]
     Indication: HYPERSENSITIVITY
  2. COUMADIN [Concomitant]
     Indication: THROMBOSIS
  3. NIASPAN [Suspect]
     Indication: BLOOD CHOLESTEROL INCREASED
     Dates: start: 20120203
  4. JANUVIA [Concomitant]
     Indication: DIABETES MELLITUS
  5. CRESTOR [Concomitant]
     Indication: BLOOD CHOLESTEROL INCREASED
  6. ZANTAC [Concomitant]
     Indication: GASTROOESOPHAGEAL REFLUX DISEASE

REACTIONS (1)
  - BLOOD GLUCOSE INCREASED [None]
